FAERS Safety Report 23418869 (Version 1)
Quarter: 2024Q1

REPORT INFORMATION
  Report Type: Other
  Country: US (occurrence: US)
  Receive Date: 20240118
  Receipt Date: 20240118
  Transmission Date: 20240410
  Serious: Yes (Other)
  Sender: FDA-Public Use
  Company Number: US-UROVANT SCIENCES GMBH-202401-URV-000038

PATIENT
  Sex: Male

DRUGS (2)
  1. GEMTESA [Suspect]
     Active Substance: VIBEGRON
     Indication: Urinary incontinence
     Dosage: 75 MG, QD
     Route: 048
     Dates: start: 202312
  2. GEMTESA [Suspect]
     Active Substance: VIBEGRON
     Indication: Nocturia

REACTIONS (2)
  - Prostate cancer [Not Recovered/Not Resolved]
  - Drug effect less than expected [Unknown]
